FAERS Safety Report 10934759 (Version 1)
Quarter: 2015Q1

REPORT INFORMATION
  Report Type: Report from Study
  Country: ES (occurrence: ES)
  Receive Date: 20150320
  Receipt Date: 20150320
  Transmission Date: 20150721
  Serious: Yes (Other)
  Sender: FDA-Public Use
  Company Number: ES-ABBVIE-15P-114-1348838-00

PATIENT
  Sex: Male

DRUGS (6)
  1. DEPRAX [Concomitant]
     Active Substance: TRAZODONE HYDROCHLORIDE
     Indication: DEPRESSION
     Dosage: 100 UG
     Route: 048
     Dates: start: 1998
  2. TRANKIMAZIN [Concomitant]
     Active Substance: ALPRAZOLAM
     Indication: ANXIETY
     Route: 048
     Dates: start: 2000
  3. OMEPRAZOL [Concomitant]
     Active Substance: OMEPRAZOLE
     Indication: GASTROOESOPHAGEAL REFLUX PROPHYLAXIS
     Route: 048
     Dates: start: 200605
  4. DUODOPA [Suspect]
     Active Substance: CARBIDOPA\LEVODOPA
     Indication: PARKINSON^S DISEASE
     Dosage: 20/5MG/ML. SEE NARRATIVE
     Route: 050
     Dates: start: 200605
  5. SINEMET [Concomitant]
     Active Substance: CARBIDOPA\LEVODOPA
     Indication: PARKINSON^S DISEASE
     Dosage: 200/50GR
     Route: 048
     Dates: start: 1990
  6. URBAL [Concomitant]
     Indication: ULCER
     Route: 048
     Dates: start: 2011

REACTIONS (26)
  - Bladder cancer recurrent [Unknown]
  - Device issue [Not Recovered/Not Resolved]
  - Device alarm issue [Unknown]
  - Device occlusion [Not Recovered/Not Resolved]
  - Device occlusion [Unknown]
  - Fall [Unknown]
  - Device issue [Unknown]
  - Tremor [Unknown]
  - Anxiety [Unknown]
  - Device dislocation [Unknown]
  - Product quality issue [Not Recovered/Not Resolved]
  - On and off phenomenon [Unknown]
  - Nephrolithiasis [Unknown]
  - Incorrect dose administered [Unknown]
  - Overdose [Not Recovered/Not Resolved]
  - Device difficult to use [Unknown]
  - Drug effect decreased [Unknown]
  - Activities of daily living impaired [Unknown]
  - Partner stress [Unknown]
  - Dyskinesia [Unknown]
  - Medication error [Unknown]
  - Drug ineffective [Unknown]
  - Renal colic [Unknown]
  - Dyspnoea [Unknown]
  - Feeling abnormal [Unknown]
  - Masked facies [Unknown]

NARRATIVE: CASE EVENT DATE: 2006
